FAERS Safety Report 6821451-1 (Version None)
Quarter: 2010Q3

REPORT INFORMATION
  Report Type: 
  Country: None (occurrence: None)
  Receive Date: 20100707
  Receipt Date: 20090117
  Transmission Date: 20110219
  Serious: No
  Sender: FDA-Public Use
  Company Number: US-PFIZER INC-2008089742

PATIENT
  Sex: Female
  Weight: 62.585 kg

DRUGS (4)
  1. ZOLOFT [Suspect]
     Indication: GENERALISED ANXIETY DISORDER
     Dosage: 50 MG, 1X/DAY
     Route: 048
     Dates: start: 20080729
  2. MECLOZINE HYDROCHLORIDE [Concomitant]
  3. FLONASE [Concomitant]
  4. CLARITIN [Concomitant]

REACTIONS (5)
  - DRUG DOSE OMISSION [None]
  - HYPOAESTHESIA ORAL [None]
  - MENSTRUATION DELAYED [None]
  - STOMATITIS [None]
  - WRONG TECHNIQUE IN DRUG USAGE PROCESS [None]
